FAERS Safety Report 6277860-5 (Version None)
Quarter: 2009Q3

REPORT INFORMATION
  Report Type: 
  Country: None (occurrence: None)
  Receive Date: 20090717
  Receipt Date: 20090717
  Transmission Date: 20100115
  Serious: Yes (Other)
  Sender: FDA-Public Use
  Company Number: None

PATIENT
  Age: 27 Year
  Sex: Female
  Weight: 136.0791 kg

DRUGS (6)
  1. MIRENA [Suspect]
     Indication: CONTRACEPTION
  2. ZYRTEC [Concomitant]
  3. SINGULAIR [Concomitant]
  4. SYMBICORT [Concomitant]
  5. ALBUTROL [Concomitant]
  6. MULTI-VITAMIN [Concomitant]

REACTIONS (7)
  - ABDOMINAL DISCOMFORT [None]
  - ABDOMINAL PAIN [None]
  - DIARRHOEA [None]
  - DIZZINESS [None]
  - FEELING ABNORMAL [None]
  - HEADACHE [None]
  - NAUSEA [None]
